FAERS Safety Report 8099469-3 (Version None)
Quarter: 2012Q1

REPORT INFORMATION
  Report Type: 
  Country: None (occurrence: None)
  Receive Date: 20120129
  Receipt Date: 20111005
  Transmission Date: 20120608
  Serious: No
  Sender: FDA-Public Use
  Company Number: US-ABBOTT-11P-163-0861793-00

PATIENT
  Sex: Male

DRUGS (3)
  1. HUMIRA [Suspect]
     Indication: CROHN'S DISEASE
     Dosage: DAY 1
     Dates: start: 20110801, end: 20110801
  2. HUMIRA [Suspect]
     Dosage: DAY 15
  3. HUMIRA [Suspect]

REACTIONS (6)
  - DIZZINESS [None]
  - EAR PAIN [None]
  - WEIGHT INCREASED [None]
  - INCREASED APPETITE [None]
  - DRY SKIN [None]
  - INCREASED TENDENCY TO BRUISE [None]
